FAERS Safety Report 6536142-4 (Version None)
Quarter: 2010Q1

REPORT INFORMATION
  Report Type: 
  Country: None (occurrence: None)
  Receive Date: 20100113
  Receipt Date: 20091020
  Transmission Date: 20100710
  Serious: No
  Sender: FDA-Public Use
  Company Number: US-ALLERGAN-0914602US

PATIENT
  Sex: Female

DRUGS (1)
  1. LATISSE [Suspect]
     Indication: HYPOTRICHOSIS
     Dosage: INTERMITTENTLY
     Route: 061

REACTIONS (6)
  - ASTHENOPIA [None]
  - DRUG INEFFECTIVE [None]
  - EYE SWELLING [None]
  - OCULAR HYPERAEMIA [None]
  - PERIORBITAL OEDEMA [None]
  - SKIN HYPERPIGMENTATION [None]
